FAERS Safety Report 18429034 (Version 2)
Quarter: 2020Q4

REPORT INFORMATION
  Report Type: Spontaneous
  Country: EE (occurrence: EE)
  Receive Date: 20201026
  Receipt Date: 20201106
  Transmission Date: 20210114
  Serious: Yes (Other)
  Sender: FDA-Public Use
  Company Number: EE-ABBVIE-20K-221-3622212-00

PATIENT
  Age: 63 Year
  Sex: Female

DRUGS (1)
  1. RINVOQ [Suspect]
     Active Substance: UPADACITINIB
     Indication: RHEUMATOID ARTHRITIS
     Route: 048
     Dates: start: 20200717, end: 202008

REACTIONS (6)
  - Rheumatoid arthritis [Unknown]
  - Ulcerative keratitis [Recovering/Resolving]
  - Musculoskeletal stiffness [Not Recovered/Not Resolved]
  - Arthralgia [Not Recovered/Not Resolved]
  - Corneal defect [Recovering/Resolving]
  - Eye injury [Recovering/Resolving]

NARRATIVE: CASE EVENT DATE: 2020
